FAERS Safety Report 10794780 (Version 2)
Quarter: 2015Q2

REPORT INFORMATION
  Report Type: Spontaneous
  Country: US (occurrence: US)
  Receive Date: 20150213
  Receipt Date: 20150402
  Transmission Date: 20150821
  Serious: No
  Sender: FDA-Public Use
  Company Number: US-GLAXOSMITHKLINE-US2015GSK020170

PATIENT
  Sex: Male
  Weight: 90.7 kg

DRUGS (19)
  1. CURCUMIN [Concomitant]
     Active Substance: CURCUMIN
  2. TRAMADOL HYDROCHLORIDE ER [Concomitant]
  3. AMLODIPINE [Concomitant]
     Active Substance: AMLODIPINE BESYLATE
  4. ASTRAGALUS ROOT [Concomitant]
  5. TURMERIC [Concomitant]
     Active Substance: TURMERIC
  6. BILBERRY [Concomitant]
     Active Substance: BILBERRY
  7. COQ10 [Concomitant]
     Active Substance: UBIDECARENONE
  8. GABAPENTIN. [Concomitant]
     Active Substance: GABAPENTIN
  9. MEKINIST [Suspect]
     Active Substance: TRAMETINIB DIMETHYL SULFOXIDE
     Indication: MALIGNANT MELANOMA
     Dosage: 2 MG, QD
     Route: 048
     Dates: start: 20150205
  10. TYLENOL [Concomitant]
     Active Substance: ACETAMINOPHEN
  11. LECITHIN [Concomitant]
     Active Substance: LECITHIN
  12. ECHINACEA [Concomitant]
     Active Substance: ECHINACEA, UNSPECIFIED
  13. SIMVASTATIN. [Concomitant]
     Active Substance: SIMVASTATIN
  14. LOSARTAN POTASSIUM. [Concomitant]
     Active Substance: LOSARTAN POTASSIUM
  15. TAFINLAR [Suspect]
     Active Substance: DABRAFENIB MESYLATE
     Dosage: 100 MG, BID
     Route: 047
  16. NAPROXEN. [Concomitant]
     Active Substance: NAPROXEN
  17. TAFINLAR [Suspect]
     Active Substance: DABRAFENIB MESYLATE
     Indication: MALIGNANT MELANOMA
     Dosage: 150 MG, BID
     Route: 048
     Dates: start: 20150205
  18. MULTIVITAMINS [Concomitant]
     Active Substance: VITAMINS
  19. VITAMIN B-COMPLEX [Concomitant]
     Active Substance: DEXPANTHENOL\NIACINAMIDE\PYRIDOXINE HYDROCHLORIDE\RIBOFLAVIN 5^-PHOSPHATE SODIUM\THIAMINE HYDROCHLORIDE

REACTIONS (4)
  - Headache [Unknown]
  - Body temperature increased [Unknown]
  - Blood pressure increased [Unknown]
  - Unevaluable event [Unknown]
